FAERS Safety Report 16128836 (Version 1)
Quarter: 2019Q1

REPORT INFORMATION
  Report Type: Report from Study
  Country: US (occurrence: US)
  Receive Date: 20190328
  Receipt Date: 20190328
  Transmission Date: 20190418
  Serious: Yes (Death, Hospitalization, Other)
  Sender: FDA-Public Use
  Company Number: US-ADAMAS PHARMA, LLC-2019ADA00425

PATIENT
  Age: 72 Year
  Sex: Female
  Weight: 65.76 kg

DRUGS (6)
  1. GOCOVRI [Suspect]
     Active Substance: AMANTADINE
     Dosage: 274 MG, 1X/DAY AT BEDTIME
     Route: 048
     Dates: start: 20190212, end: 2019
  2. OXYBUTYNIN. [Suspect]
     Active Substance: OXYBUTYNIN CHLORIDE
  3. NEUPRO [Concomitant]
     Active Substance: ROTIGOTINE
  4. GOCOVRI [Suspect]
     Active Substance: AMANTADINE
     Indication: DYSKINESIA
     Dosage: 137 MG, 1X/DAY AT BEDTIME
     Route: 048
     Dates: start: 20190205, end: 20190211
  5. GOCOVRI [Suspect]
     Active Substance: AMANTADINE
     Dosage: 274 MG, EVERY OTHER DAY AT BEDTIME
     Route: 048
     Dates: start: 20190212, end: 2019
  6. CARBIDOPA; LEVODOPA [Concomitant]

REACTIONS (8)
  - Urinary retention [Unknown]
  - Death [Fatal]
  - Hyponatraemia [Unknown]
  - Hallucination [Unknown]
  - Dysphagia [Not Recovered/Not Resolved]
  - Delusion [Not Recovered/Not Resolved]
  - Hospice care [Not Recovered/Not Resolved]
  - Confusional state [Not Recovered/Not Resolved]

NARRATIVE: CASE EVENT DATE: 201902
